FAERS Safety Report 16008604 (Version 2)
Quarter: 2019Q2

REPORT INFORMATION
  Report Type: Spontaneous
  Country: US (occurrence: US)
  Receive Date: 20190226
  Receipt Date: 20190524
  Transmission Date: 20190711
  Serious: No
  Sender: FDA-Public Use
  Company Number: US-AMAG PHARMACEUTICALS, INC.-AMAG201900159

PATIENT
  Age: 78 Year
  Sex: Female

DRUGS (1)
  1. INTRAROSA [Suspect]
     Active Substance: PRASTERONE
     Indication: DYSPAREUNIA
     Dosage: 6.5 MG, QHS
     Route: 067
     Dates: start: 201806, end: 201902

REACTIONS (5)
  - Pruritus [Not Recovered/Not Resolved]
  - Alopecia [Not Recovered/Not Resolved]
  - Application site irritation [Not Recovered/Not Resolved]
  - Vulvovaginal injury [Recovered/Resolved]
  - Application site discharge [Recovered/Resolved]

NARRATIVE: CASE EVENT DATE: 20180625
